FAERS Safety Report 9879748 (Version 3)
Quarter: 2014Q1

REPORT INFORMATION
  Report Type: Other
  Country: US (occurrence: US)
  Receive Date: 20140206
  Receipt Date: 20140218
  Transmission Date: 20141002
  Serious: Yes (Other)
  Sender: FDA-Public Use
  Company Number: US-ACORDA-ACO_38881_2013

PATIENT
  Age: 47 Year
  Sex: Female

DRUGS (4)
  1. AMPYRA [Suspect]
     Indication: MULTIPLE SCLEROSIS
     Dosage: 10 MG, BID
     Route: 048
     Dates: start: 20120221, end: 20130917
  2. TYSABRI [Suspect]
     Indication: MULTIPLE SCLEROSIS
     Dosage: 300 MG/15ML, MONTHLY
     Route: 042
     Dates: start: 201208, end: 20130917
  3. HYDROCHLOROTHIAZIDE WITH TRIAMTERENE [Concomitant]
     Indication: HYPERTENSION
     Dosage: 25 MG, QD
     Route: 048
     Dates: start: 201206
  4. LORTAB [Concomitant]
     Indication: PAIN
     Dosage: 10-500, PRN
     Route: 048
     Dates: start: 200201

REACTIONS (2)
  - Convulsion [Recovered/Resolved]
  - Therapeutic response unexpected [Unknown]
